FAERS Safety Report 5835064-1 (Version None)
Quarter: 2008Q3

REPORT INFORMATION
  Report Type: 
  Country: None (occurrence: None)
  Receive Date: 20080804
  Receipt Date: 20080725
  Transmission Date: 20090109
  Serious: Yes (Death, Other)
  Sender: FDA-Public Use
  Company Number: GXKR2008GB07014

PATIENT
  Age: 70 Year
  Sex: Male

DRUGS (2)
  1. VERAPAMIL [Suspect]
     Dosage: 120 MG, QD, ORAL
     Route: 048
  2. DONEPEZIL HCL [Suspect]
     Dosage: ORAL
     Route: 048

REACTIONS (1)
  - ATRIOVENTRICULAR BLOCK [None]
